FAERS Safety Report 8736832 (Version 5)
Quarter: 2014Q1

REPORT INFORMATION
  Report Type: Spontaneous
  Country: FR (occurrence: FR)
  Receive Date: 20120822
  Receipt Date: 20140213
  Transmission Date: 20141002
  Serious: Yes (Disabling)
  Sender: FDA-Public Use
  Company Number: FR-TEVA-354125ISR

PATIENT
  Age: 70 Year
  Sex: Female

DRUGS (4)
  1. AZILECT [Suspect]
     Indication: PARKINSON^S DISEASE
     Dosage: 1 MILLIGRAM DAILY; LONG TERM TREATMENT
     Route: 048
  2. REQUIP LP [Suspect]
     Indication: PARKINSON^S DISEASE
     Dosage: 6 MILLIGRAM DAILY; 4+2MG IN THE MORNING
     Route: 048
  3. REQUIP LP [Suspect]
     Dosage: 8 MILLIGRAM DAILY; 8MG IN THE EVENING
     Route: 048
  4. SINEMET [Suspect]
     Indication: PARKINSON^S DISEASE
     Dosage: 3 DOSAGE FORMS DAILY; LEVODOPA/CARBIDOPA:100MG/10MG
     Route: 048
     Dates: end: 20120709

REACTIONS (5)
  - Bursitis [Not Recovered/Not Resolved]
  - Rotator cuff syndrome [Not Recovered/Not Resolved]
  - Tendonitis [Unknown]
  - Skin mass [Unknown]
  - Oedema peripheral [Unknown]
